FAERS Safety Report 6556235-5 (Version None)
Quarter: 2010Q1

REPORT INFORMATION
  Report Type: 
  Country: None (occurrence: None)
  Receive Date: 20100128
  Receipt Date: 20090807
  Transmission Date: 20100710
  Serious: No
  Sender: FDA-Public Use
  Company Number: US-TEVA-205373USA

PATIENT

DRUGS (2)
  1. COPAXONE [Suspect]
     Indication: MULTIPLE SCLEROSIS
     Route: 058
  2. BACLOFEN [Concomitant]

REACTIONS (2)
  - MUSCLE SPASMS [None]
  - MUSCLE SPASTICITY [None]
